FAERS Safety Report 8109379 (Version 3)
Quarter: 2013Q4

REPORT INFORMATION
  Report Type: Spontaneous
  Country: US (occurrence: US)
  Receive Date: 20110826
  Receipt Date: 20131126
  Transmission Date: 20140711
  Serious: Yes (Hospitalization, Other)
  Sender: FDA-Public Use
  Company Number: US-BAYER-2011-075083

PATIENT
  Age: 21 Year
  Sex: Female
  Weight: 97.51 kg

DRUGS (5)
  1. YAZ [Suspect]
     Dosage: UNK
     Dates: start: 2004, end: 2006
  2. YASMIN [Suspect]
     Dosage: UNK
     Dates: start: 2004, end: 2006
  3. LEVSIN [Concomitant]
     Dosage: 1 TABLET BID WITH MEALS
  4. NEXIUM [Concomitant]
     Dosage: 40 MG, 1 DAILY
  5. BENTYL [Concomitant]
     Dosage: 10 MG, PRN EVERY 6 HOURS

REACTIONS (4)
  - Gallbladder injury [None]
  - Biliary dyskinesia [None]
  - Injury [None]
  - Pain [None]
